FAERS Safety Report 23895387 (Version 1)
Quarter: 2024Q2

REPORT INFORMATION
  Report Type: Spontaneous
  Country: CO (occurrence: CO)
  Receive Date: 20240524
  Receipt Date: 20240524
  Transmission Date: 20240716
  Serious: Yes (Other)
  Sender: FDA-Public Use
  Company Number: CO-SUN PHARMACEUTICAL INDUSTRIES LTD-2024RR-447638

PATIENT
  Age: 47 Year
  Sex: Female

DRUGS (1)
  1. LEVETIRACETAM [Suspect]
     Active Substance: LEVETIRACETAM
     Indication: Ictal bradycardia syndrome
     Dosage: 1 GRAM, TID
     Route: 065

REACTIONS (1)
  - Toxic epidermal necrolysis [Unknown]
